FAERS Safety Report 21698013 (Version 2)
Quarter: 2022Q4

REPORT INFORMATION
  Report Type: Report from Study
  Country: AU (occurrence: AU)
  Receive Date: 20221208
  Receipt Date: 20221219
  Transmission Date: 20230113
  Serious: Yes (Other)
  Sender: FDA-Public Use
  Company Number: AU-JNJFOC-20221200897

PATIENT

DRUGS (2)
  1. IMBRUVICA [Suspect]
     Active Substance: IBRUTINIB
     Indication: Chronic lymphocytic leukaemia
     Dosage: 20 PERCENT
     Route: 048
  2. IMBRUVICA [Suspect]
     Active Substance: IBRUTINIB
     Indication: Chronic lymphocytic leukaemia
     Dosage: 20 PERCENT
     Route: 048

REACTIONS (6)
  - Cardiovascular disorder [Unknown]
  - Off label use [Unknown]
  - Chronic lymphocytic leukaemia [Unknown]
  - Contusion [Unknown]
  - Drug ineffective [Unknown]
  - Haemorrhage [Unknown]
